FAERS Safety Report 19305235 (Version 3)
Quarter: 2021Q2

REPORT INFORMATION
  Report Type: Report from Study
  Country: CA (occurrence: CA)
  Receive Date: 20210525
  Receipt Date: 20210618
  Transmission Date: 20210717
  Serious: Yes (Other)
  Sender: FDA-Public Use
  Company Number: CA-JNJFOC-20210534693

PATIENT
  Age: 69 Year
  Sex: Male
  Weight: 87 kg

DRUGS (2)
  1. REMICADE [Suspect]
     Active Substance: INFLIXIMAB
     Route: 042
  2. REMICADE [Suspect]
     Active Substance: INFLIXIMAB
     Indication: CROHN^S DISEASE
     Dosage: 10MG/KG
     Route: 042

REACTIONS (15)
  - Drug specific antibody present [Unknown]
  - Abdominal pain [Unknown]
  - Heart rate increased [Unknown]
  - Feeling cold [Recovering/Resolving]
  - Diarrhoea [Unknown]
  - Hypertension [Unknown]
  - Dysgeusia [Unknown]
  - Defaecation urgency [Unknown]
  - Cerebrovascular accident [Unknown]
  - Tremor [Recovering/Resolving]
  - Haematochezia [Unknown]
  - Nausea [Recovering/Resolving]
  - Infusion related reaction [Unknown]
  - Hyperhidrosis [Recovering/Resolving]
  - Therapeutic product effect decreased [Unknown]

NARRATIVE: CASE EVENT DATE: 2007
